FAERS Safety Report 9897245 (Version 1)
Quarter: 2014Q1

REPORT INFORMATION
  Report Type: Report from Study
  Country: US (occurrence: US)
  Receive Date: 20140214
  Receipt Date: 20140214
  Transmission Date: 20141002
  Serious: Yes (Death)
  Sender: FDA-Public Use
  Company Number: US-ROCHE-1324637

PATIENT
  Sex: Female
  Weight: 51.8 kg

DRUGS (1)
  1. AVASTIN [Suspect]
     Indication: MALIGNANT PERITONEAL NEOPLASM
     Dosage: IN 0.9% NACL (100 ML) (30/DEC/2010, 25/JAN/2011, 15/FEB/2011, 08/MAR/2011, 29/MAR/2011, 19/APR/2011,
     Route: 042
     Dates: start: 20101008

REACTIONS (2)
  - Death [Fatal]
  - Off label use [Unknown]
